FAERS Safety Report 7093039-1 (Version None)
Quarter: 2010Q4

REPORT INFORMATION
  Report Type: 
  Country: None (occurrence: None)
  Receive Date: 20101110
  Receipt Date: 20101108
  Transmission Date: 20110411
  Serious: Yes (Hospitalization)
  Sender: FDA-Public Use
  Company Number: JP-AMGEN-JPNCT2010003615

PATIENT

DRUGS (10)
  1. PANITUMUMAB [Suspect]
     Indication: COLORECTAL CANCER
     Dosage: 6 MG/KG, Q2WK
     Route: 041
     Dates: start: 20100909
  2. IRINOTECAN HYDROCHLORIDE [Concomitant]
     Route: 041
     Dates: start: 20100909
  3. CORTICOSTEROIDS [Concomitant]
     Route: 065
  4. EMEND [Concomitant]
     Route: 048
  5. ALOXI [Concomitant]
     Route: 042
  6. DECADRON PHOSPHATE [Concomitant]
     Route: 042
  7. LOCOID CREAM [Concomitant]
     Route: 062
  8. OXYCONTIN [Concomitant]
     Route: 048
  9. OXINORM [Concomitant]
     Dosage: UNK
     Route: 048
  10. LOXONIN [Concomitant]
     Route: 048

REACTIONS (2)
  - CANCER PAIN [None]
  - VOMITING [None]
